FAERS Safety Report 7902446-3 (Version None)
Quarter: 2011Q4

REPORT INFORMATION
  Report Type: 
  Country: None (occurrence: None)
  Receive Date: 20111108
  Receipt Date: 20111027
  Transmission Date: 20120403
  Serious: Yes (Death)
  Sender: FDA-Public Use
  Company Number: GB-PFIZER INC-2011243060

PATIENT
  Age: 1 Day
  Sex: Female
  Weight: 3.8 kg

DRUGS (16)
  1. AMOXICILLIN [Concomitant]
     Dosage: UNK
     Dates: start: 20111010, end: 20111010
  2. PHYTOMENADIONE [Concomitant]
     Dosage: UNK
     Dates: start: 20111010, end: 20111010
  3. SILDENAFIL CITRATE [Suspect]
     Dosage: 0.03 MG/KG PER HOUR FOR 15 MINS
     Route: 042
     Dates: start: 20111010, end: 20111010
  4. GENTAMICIN [Concomitant]
     Dosage: UNK
     Dates: start: 20111010, end: 20111010
  5. SODIUM BICARBONATE [Concomitant]
     Dosage: UNK
     Dates: start: 20111010, end: 20111010
  6. DOPAMINE [Concomitant]
     Dosage: UNK
     Dates: start: 20111010
  7. MAGNESIUM [Concomitant]
     Dosage: UNK
     Dates: start: 20111010, end: 20111010
  8. SILDENAFIL CITRATE [Suspect]
     Indication: PULMONARY HYPERTENSION
     Dosage: 0.1 MG/KG, OVER 30 MINS
     Dates: start: 20111010, end: 20111010
  9. SUXAMETHONIUM [Concomitant]
     Dosage: UNK
     Dates: start: 20111010, end: 20111010
  10. NITRIC OXIDE [Concomitant]
     Dosage: UNK
     Route: 055
     Dates: start: 20111010, end: 20111010
  11. NOREPINEPHRINE BITARTRATE [Concomitant]
     Dosage: UNK
     Dates: start: 20111010
  12. ATROPINE [Concomitant]
     Dosage: UNK
     Dates: start: 20111010, end: 20111010
  13. KETOROLAC TROMETHAMINE [Concomitant]
     Dosage: UNK
     Dates: start: 20111010, end: 20111010
  14. MORPHINE [Concomitant]
     Dosage: UNK
     Dates: start: 20111010
  15. ADRENALIN IN OIL INJ [Concomitant]
     Dosage: UNK
     Dates: start: 20111010
  16. SURFACTANT PROTEIN D (BIOMARKER) [Concomitant]
     Dosage: UNK
     Dates: start: 20111010, end: 20111010

REACTIONS (1)
  - HYPOTENSION [None]
